FAERS Safety Report 9282163 (Version 1)
Quarter: 2013Q2

REPORT INFORMATION
  Report Type: Spontaneous
  Country: US (occurrence: US)
  Receive Date: 20130510
  Receipt Date: 20130510
  Transmission Date: 20140414
  Serious: No
  Sender: FDA-Public Use
  Company Number: US-PFIZER INC-2013144028

PATIENT
  Sex: Male

DRUGS (1)
  1. XALKORI [Suspect]
     Indication: MALIGNANT MELANOMA
     Dosage: 250 MG, 2X/DAY
     Route: 048
     Dates: start: 20130128, end: 20130501

REACTIONS (3)
  - Off label use [Unknown]
  - Disease progression [Unknown]
  - Malignant melanoma [Unknown]
